FAERS Safety Report 20578092 (Version 1)
Quarter: 2022Q1

REPORT INFORMATION
  Report Type: Spontaneous
  Country: US (occurrence: None)
  Receive Date: 20220310
  Receipt Date: 20220310
  Transmission Date: 20220423
  Serious: Yes (Hospitalization)
  Sender: FDA-Public Use
  Company Number: None

PATIENT
  Sex: Female

DRUGS (1)
  1. ENBREL [Suspect]
     Active Substance: ETANERCEPT
     Indication: Psoriatic arthropathy
     Dosage: 50MG WEEKLY SUBCUTANEOUS?
     Route: 058
     Dates: start: 202110

REACTIONS (3)
  - Staphylococcal infection [None]
  - Gangrene [None]
  - Wound [None]
